FAERS Safety Report 4731649-4 (Version None)
Quarter: 2005Q3

REPORT INFORMATION
  Report Type: 
  Country: None (occurrence: None)
  Receive Date: 20050802
  Receipt Date: 20050721
  Transmission Date: 20060218
  Serious: Yes (Other)
  Sender: FDA-Public Use
  Company Number: DE-JNJFOC-20050704703

PATIENT
  Age: 41 Year
  Sex: Female

DRUGS (1)
  1. HALDOL [Suspect]
     Indication: SCHIZOPHRENIA
     Dosage: GIVEN ONCE
     Route: 030

REACTIONS (1)
  - BLOOD CREATINE PHOSPHOKINASE INCREASED [None]
